FAERS Safety Report 5888124-3 (Version None)
Quarter: 2008Q3

REPORT INFORMATION
  Report Type: 
  Country: None (occurrence: None)
  Receive Date: 20080916
  Receipt Date: 20080916
  Transmission Date: 20090109
  Serious: Yes (Other)
  Sender: FDA-Public Use
  Company Number: None

PATIENT
  Sex: Female
  Weight: 62.5964 kg

DRUGS (1)
  1. ACTONEL [Suspect]
     Indication: OSTEOARTHRITIS
     Dosage: 150MG  1 MONTHLY  PO (DURATION: ONE DOSE)
     Route: 048
     Dates: start: 20080629, end: 20080629

REACTIONS (14)
  - CONSTIPATION [None]
  - EMOTIONAL DISORDER [None]
  - EYE BURNS [None]
  - EYE IRRITATION [None]
  - FEELING DRUNK [None]
  - HEADACHE [None]
  - IMPAIRED DRIVING ABILITY [None]
  - MENTAL STATUS CHANGES [None]
  - MUSCLE DISORDER [None]
  - MUSCLE SPASMS [None]
  - MYALGIA [None]
  - OEDEMA [None]
  - PAIN IN EXTREMITY [None]
  - TOOTH ABSCESS [None]
